FAERS Safety Report 8908848 (Version 5)
Quarter: 2019Q2

REPORT INFORMATION
  Report Type: Spontaneous
  Country: JP (occurrence: JP)
  Receive Date: 20121114
  Receipt Date: 20190418
  Transmission Date: 20190711
  Serious: Yes (Death)
  Sender: FDA-Public Use
  Company Number: JP-ROCHE-1151052

PATIENT
  Age: 70 Year
  Sex: Male
  Weight: 68 kg

DRUGS (7)
  1. METHOTREXATE. [Suspect]
     Active Substance: METHOTREXATE
     Indication: RHEUMATOID ARTHRITIS
     Route: 048
     Dates: end: 20110201
  2. PRELONE [Concomitant]
     Active Substance: PREDNISOLONE
     Indication: RHEUMATOID ARTHRITIS
     Route: 048
     Dates: end: 20081202
  3. PRELONE [Concomitant]
     Active Substance: PREDNISOLONE
     Indication: RHEUMATOID ARTHRITIS
     Route: 048
     Dates: start: 20090107
  4. LOXONIN [Concomitant]
     Active Substance: LOXOPROFEN SODIUM
     Indication: RHEUMATOID ARTHRITIS
     Route: 048
  5. PRELONE [Concomitant]
     Active Substance: PREDNISOLONE
     Indication: RHEUMATOID ARTHRITIS
     Route: 048
     Dates: start: 20081203, end: 20090106
  6. GASTER [Concomitant]
     Active Substance: FAMOTIDINE
     Indication: PROPHYLAXIS
     Route: 048
  7. ACTEMRA [Suspect]
     Active Substance: TOCILIZUMAB
     Indication: RHEUMATOID ARTHRITIS
     Dosage: 480-560MG
     Route: 041
     Dates: start: 20080718, end: 20121011

REACTIONS (7)
  - Abdominal wall haematoma [Fatal]
  - Disseminated intravascular coagulation [Fatal]
  - White blood cell count decreased [Unknown]
  - Multiple organ dysfunction syndrome [Fatal]
  - Shock haemorrhagic [Fatal]
  - Epstein-Barr virus infection [Fatal]
  - Haemophagocytic lymphohistiocytosis [Fatal]

NARRATIVE: CASE EVENT DATE: 20121022
